FAERS Safety Report 10478657 (Version 1)
Quarter: 2014Q3

REPORT INFORMATION
  Report Type: Spontaneous
  Country: US (occurrence: None)
  Receive Date: 20140924
  Receipt Date: 20140924
  Transmission Date: 20150326
  Serious: Yes (Other)
  Sender: FDA-Public Use
  Company Number: US-H14001-14-00680

PATIENT
  Age: 47 Year
  Sex: Male

DRUGS (4)
  1. DIVALPROATE (VALPROATE SODIUM) [Concomitant]
  2. QUETIAPINE [Concomitant]
     Active Substance: QUETIAPINE
  3. LACTULOSE (LACTULOSE) [Suspect]
     Active Substance: LACTULOSE
     Indication: CONSTIPATION
     Dosage: 30 ML, TWO DOSES OF 10G /15 ML ADMINISTERED?
  4. LITHIUM [Suspect]
     Active Substance: LITHIUM CARBONATE
     Indication: PRODUCT USED FOR UNKNOWN INDICATION
     Dosage: 600 MG (300MG , 2 IN 1 D)

REACTIONS (3)
  - Drug interaction [None]
  - Toxicity to various agents [None]
  - Diarrhoea [None]
